FAERS Safety Report 6418926-6 (Version None)
Quarter: 2009Q4

REPORT INFORMATION
  Report Type: 
  Country: None (occurrence: None)
  Receive Date: 20091029
  Receipt Date: 20091022
  Transmission Date: 20100525
  Serious: Yes (Hospitalization)
  Sender: FDA-Public Use
  Company Number: US-ALLERGAN-0914723US

PATIENT
  Sex: Female

DRUGS (1)
  1. BOTOX COSMETIC [Suspect]
     Indication: SKIN WRINKLING
     Dosage: UNK
     Route: 030
     Dates: start: 20090831, end: 20090831

REACTIONS (9)
  - ARRHYTHMIA [None]
  - BURNING SENSATION [None]
  - CYSTITIS [None]
  - EYELID PTOSIS [None]
  - HEADACHE [None]
  - INJECTION SITE PAIN [None]
  - NAUSEA [None]
  - PERIORBITAL OEDEMA [None]
  - URINARY TRACT INFECTION [None]
